FAERS Safety Report 13795321 (Version 1)
Quarter: 2017Q3

REPORT INFORMATION
  Report Type: Report from Study
  Country: US (occurrence: US)
  Receive Date: 20170726
  Receipt Date: 20170726
  Transmission Date: 20171127
  Serious: Yes (Hospitalization)
  Sender: FDA-Public Use
  Company Number: US-ACTELION-A-US2017-154943

PATIENT
  Age: 53 Year
  Sex: Male

DRUGS (8)
  1. FUROSEMIDE. [Concomitant]
     Active Substance: FUROSEMIDE
  2. OPSUMIT [Suspect]
     Active Substance: MACITENTAN
     Indication: PULMONARY ARTERIAL HYPERTENSION
     Dosage: 10 MG, QD
     Route: 048
     Dates: start: 20160415, end: 20170512
  3. ADCIRCA [Concomitant]
     Active Substance: TADALAFIL
  4. PROBIOTIC [Concomitant]
     Active Substance: PROBIOTICS NOS
  5. OPSUMIT [Suspect]
     Active Substance: MACITENTAN
     Dosage: 10 MG, QD
     Route: 048
  6. MORPHINE SULFATE. [Concomitant]
     Active Substance: MORPHINE SULFATE
  7. TAMSULOSIN HCL [Concomitant]
     Active Substance: TAMSULOSIN
  8. AMLODIPINE BESYLATE. [Concomitant]
     Active Substance: AMLODIPINE BESYLATE

REACTIONS (2)
  - Treatment noncompliance [Not Recovered/Not Resolved]
  - Lactobacillus infection [Recovering/Resolving]

NARRATIVE: CASE EVENT DATE: 20170512
